FAERS Safety Report 7722445-4 (Version None)
Quarter: 2011Q3

REPORT INFORMATION
  Report Type: 
  Country: None (occurrence: None)
  Receive Date: 20110831
  Receipt Date: 20110823
  Transmission Date: 20111222
  Serious: Yes (Other)
  Sender: FDA-Public Use
  Company Number: SA-TEVA-298409ISR

PATIENT
  Age: 22 Year
  Sex: Male

DRUGS (7)
  1. VINCRISTINE [Suspect]
  2. PEGINTERFERON ALFA-2A [Suspect]
     Dosage: 135 ?G/WEEK
  3. MERCAPTOPURINE [Suspect]
  4. METHOTREXATE [Suspect]
  5. PEGINTERFERON ALFA-2A [Suspect]
     Dosage: 180 ?G/WEEK FOR 8 WEEKS
  6. RIBAVIRIN [Suspect]
  7. DEXAMETHASONE [Suspect]

REACTIONS (2)
  - HEPATITIS C [None]
  - NEUTROPENIA [None]
